FAERS Safety Report 14122515 (Version 4)
Quarter: 2018Q3

REPORT INFORMATION
  Report Type: Spontaneous
  Country: US (occurrence: US)
  Receive Date: 20171024
  Receipt Date: 20180712
  Transmission Date: 20181010
  Serious: Yes (Hospitalization)
  Sender: FDA-Public Use
  Company Number: US-ACTELION-A-US2017-161231

PATIENT
  Age: 57 Year
  Sex: Female
  Weight: 58.96 kg

DRUGS (3)
  1. TRACLEER [Suspect]
     Active Substance: BOSENTAN
     Indication: PULMONARY HYPERTENSION
     Dosage: 125 MG, BID
     Route: 048
  2. ADCIRCA [Concomitant]
     Active Substance: TADALAFIL
  3. REMODULIN [Concomitant]
     Active Substance: TREPROSTINIL

REACTIONS (6)
  - Spleen disorder [Unknown]
  - Gastrointestinal disorder [Unknown]
  - Ascites [Unknown]
  - Peritonitis [Unknown]
  - Therapeutic embolisation [Unknown]
  - Liver disorder [Unknown]
